FAERS Safety Report 4607329-2 (Version None)
Quarter: 2005Q1

REPORT INFORMATION
  Report Type: 
  Country: None (occurrence: None)
  Receive Date: 20050311
  Receipt Date: 20050311
  Transmission Date: 20050727
  Serious: No
  Sender: FDA-Public Use
  Company Number: None

PATIENT
  Age: 56 Year
  Sex: Male
  Weight: 67 kg

DRUGS (1)
  1. TRAMADOL 50 MG [Suspect]
     Indication: PAIN
     Dosage: 100 PO Q 4-8 HR
     Route: 048
     Dates: start: 20041029, end: 20041031

REACTIONS (2)
  - CONVULSION [None]
  - TONGUE BITING [None]
